FAERS Safety Report 15093171 (Version 2)
Quarter: 2018Q4

REPORT INFORMATION
  Report Type: Spontaneous
  Country: TR (occurrence: TR)
  Receive Date: 20180629
  Receipt Date: 20181017
  Transmission Date: 20190204
  Serious: Yes (Hospitalization)
  Sender: FDA-Public Use
  Company Number: TR-GILEAD-2018-0347558

PATIENT
  Age: 34 Year
  Sex: Male

DRUGS (3)
  1. VIREAD [Suspect]
     Active Substance: TENOFOVIR DISOPROXIL FUMARATE
     Indication: HEPATITIS B
     Dosage: 245 MG, UNK
     Route: 065
  2. EVEROLIMUS. [Concomitant]
     Active Substance: EVEROLIMUS
  3. TACROLIMUS. [Concomitant]
     Active Substance: TACROLIMUS
     Dosage: 2 MG, QD

REACTIONS (3)
  - Blood bilirubin increased [Recovered/Resolved]
  - Alanine aminotransferase increased [Recovered/Resolved]
  - Aspartate aminotransferase increased [Recovered/Resolved]
